FAERS Safety Report 8685324 (Version 2)
Quarter: 2012Q4

REPORT INFORMATION
  Report Type: 
  Country: US (occurrence: US)
  Receive Date: 20120726
  Receipt Date: 20120919
  Transmission Date: 20130627
  Serious: No
  Sender: FDA-Public Use
  Company Number: US-ASTRAZENECA-2011SE50666

PATIENT
  Age: 34 Year
  Sex: Male
  Weight: 90.7 kg

DRUGS (3)
  1. SEROQUEL XR [Suspect]
     Route: 048
     Dates: start: 201105
  2. COUMADIN [Concomitant]
     Indication: THROMBOSIS
  3. CITALOPRAM HBR [Concomitant]
     Indication: DEPRESSION

REACTIONS (2)
  - Bipolar disorder [Unknown]
  - Hypersomnia [Unknown]
